FAERS Safety Report 14445563 (Version 1)
Quarter: 2018Q1

REPORT INFORMATION
  Report Type: Spontaneous
  Country: US (occurrence: US)
  Receive Date: 20180126
  Receipt Date: 20180126
  Transmission Date: 20180509
  Serious: No
  Sender: FDA-Public Use
  Company Number: US-BAYER-2018-016547

PATIENT
  Age: 64 Year

DRUGS (1)
  1. ALEVE [Suspect]
     Active Substance: NAPROXEN SODIUM
     Dosage: 800 MIL/CMM, BID
     Route: 048

REACTIONS (2)
  - Product prescribing issue [None]
  - Product use issue [Unknown]
